FAERS Safety Report 9994659 (Version 2)
Quarter: 2014Q2

REPORT INFORMATION
  Report Type: Spontaneous
  Country: US (occurrence: None)
  Receive Date: 20140306
  Receipt Date: 20140407
  Transmission Date: 20141212
  Serious: Yes (Other)
  Sender: FDA-Public Use
  Company Number: 2210602

PATIENT
  Age: 70 Year
  Sex: Female
  Weight: 86.18 kg

DRUGS (17)
  1. VITAMIN K1 [Suspect]
     Indication: INTERNATIONAL NORMALISED RATIO INCREASED
     Route: 058
     Dates: start: 20140203, end: 2014
  2. WARFARIN [Concomitant]
  3. COUMADIN /00014802/ [Concomitant]
  4. MACROBID /00024401/ [Concomitant]
  5. PROAIR /00139502/ [Concomitant]
  6. LEVOTHYROXINE [Concomitant]
  7. TEMAZEPAM [Concomitant]
  8. VITAMIN D /00107901/ [Concomitant]
  9. CRANBERRY [Concomitant]
  10. PRAVASTATIN [Concomitant]
  11. SINGULAIR [Concomitant]
  12. SUPER B COMPLEX /01995301/ [Concomitant]
  13. LAMICTAL [Concomitant]
  14. ALPRAZOLAM [Concomitant]
  15. ADVAIR [Concomitant]
  16. FISH OIL [Concomitant]
  17. CALCIUM MAGNESIUM [Concomitant]

REACTIONS (11)
  - Injection site pruritus [None]
  - Condition aggravated [None]
  - Injection site inflammation [None]
  - Hypersensitivity [None]
  - Swelling [None]
  - Nausea [None]
  - Injection site warmth [None]
  - Injection site exfoliation [None]
  - Feeling hot [None]
  - Skin discolouration [None]
  - Therapeutic response decreased [None]
